FAERS Safety Report 7035287-2 (Version None)
Quarter: 2010Q4

REPORT INFORMATION
  Report Type: 
  Country: None (occurrence: None)
  Receive Date: 20101008
  Receipt Date: 20101008
  Transmission Date: 20110411
  Serious: Yes (Life-Threatening, Hospitalization, Other)
  Sender: FDA-Public Use
  Company Number: B0672059A

PATIENT
  Age: 70 Year
  Sex: Female
  Weight: 100 kg

DRUGS (8)
  1. ARIXTRA [Suspect]
     Indication: PULMONARY EMBOLISM
     Dosage: 7.5MG PER DAY
     Route: 058
     Dates: start: 20100801, end: 20100818
  2. LOVENOX [Suspect]
     Dosage: .4ML SINGLE DOSE
     Route: 058
     Dates: start: 20100801, end: 20100801
  3. TRIATEC [Suspect]
     Dosage: 1.25MG PER DAY
     Route: 048
  4. KARDEGIC [Suspect]
     Indication: PROPHYLAXIS
     Dosage: 75MG PER DAY
     Route: 048
  5. LEVOTHYROXINE SODIUM [Suspect]
     Indication: HYPOTHYROIDISM
     Dosage: 100MCG PER DAY
     Route: 048
  6. KALEORID [Concomitant]
     Dosage: 100MG PER DAY
     Route: 048
  7. LASIX [Concomitant]
     Indication: DIURETIC THERAPY
     Dosage: 40MG PER DAY
     Route: 048
  8. INSULATARD [Concomitant]
     Dosage: 100IU PER DAY
     Route: 058

REACTIONS (3)
  - ABDOMINAL WALL HAEMATOMA [None]
  - HAEMOGLOBIN DECREASED [None]
  - SHOCK HAEMORRHAGIC [None]
